FAERS Safety Report 8112234-3 (Version None)
Quarter: 2012Q1

REPORT INFORMATION
  Report Type: 
  Country: None (occurrence: None)
  Receive Date: 20120203
  Receipt Date: 20120131
  Transmission Date: 20120608
  Serious: No
  Sender: FDA-Public Use
  Company Number: US-PFIZER INC-2012026767

PATIENT
  Sex: Female
  Weight: 74.83 kg

DRUGS (3)
  1. CELEBREX [Suspect]
     Indication: KNEE OPERATION
     Dosage: 200 MG, 2X/DAY
     Route: 048
     Dates: start: 20101001
  2. CELEBREX [Suspect]
     Dosage: UNK
     Dates: start: 20120101
  3. SYNTHROID [Concomitant]
     Indication: THYROID DISORDER
     Dosage: UNK

REACTIONS (2)
  - ARTHRITIS [None]
  - GASTROINTESTINAL DISORDER [None]
